FAERS Safety Report 5329991-1 (Version None)
Quarter: 2007Q2

REPORT INFORMATION
  Report Type: 
  Country: None (occurrence: None)
  Receive Date: 20070521
  Receipt Date: 20070518
  Transmission Date: 20071010
  Serious: Yes (Life-Threatening)
  Sender: FDA-Public Use
  Company Number: A0651977A

PATIENT
  Age: 68 Year
  Sex: Male
  Weight: 57 kg

DRUGS (2)
  1. SERETIDE [Suspect]
     Indication: ASTHMA
     Route: 055
     Dates: start: 20070509, end: 20070512
  2. BEROTEC [Concomitant]
     Dates: start: 20061201

REACTIONS (4)
  - APNOEA [None]
  - CARDIOVASCULAR DISORDER [None]
  - FEELING HOT [None]
  - MUSCLE SPASMS [None]
